FAERS Safety Report 18760637 (Version 3)
Quarter: 2021Q1

REPORT INFORMATION
  Report Type: Report from Study
  Country: US (occurrence: US)
  Receive Date: 20210120
  Receipt Date: 20210304
  Transmission Date: 20210419
  Serious: No
  Sender: FDA-Public Use
  Company Number: NVSC2021US010981

PATIENT
  Age: 60 Year
  Sex: Male

DRUGS (1)
  1. ENTRESTO [Suspect]
     Active Substance: SACUBITRIL\VALSARTAN
     Indication: PRODUCT USED FOR UNKNOWN INDICATION
     Dosage: 01 DF (97/103 MG)
     Route: 048
     Dates: start: 2020

REACTIONS (6)
  - Cough [Unknown]
  - Weight decreased [Unknown]
  - Product dose omission issue [Unknown]
  - Injury [Unknown]
  - Fall [Unknown]
  - Productive cough [Unknown]

NARRATIVE: CASE EVENT DATE: 202012
